FAERS Safety Report 7920425-7 (Version None)
Quarter: 2011Q4

REPORT INFORMATION
  Report Type: 
  Country: None (occurrence: None)
  Receive Date: 20111117
  Receipt Date: 20111107
  Transmission Date: 20120403
  Serious: Yes (Other)
  Sender: FDA-Public Use
  Company Number: PHHY2011BR098184

PATIENT
  Sex: Female

DRUGS (1)
  1. DIOVAN HCT [Suspect]
     Indication: HYPERTENSION
     Dosage: 1 DF(VALSARTAN 80 MG/HYDROCHLOROTHIAZIDE 12.5 MG), PER DAY

REACTIONS (2)
  - BREAST MASS [None]
  - HYPERTENSION [None]
